FAERS Safety Report 7884908-0 (Version None)
Quarter: 2011Q4

REPORT INFORMATION
  Report Type: 
  Country: None (occurrence: None)
  Receive Date: 20111102
  Receipt Date: 20111027
  Transmission Date: 20120403
  Serious: Yes (Hospitalization)
  Sender: FDA-Public Use
  Company Number: FR-CEPHALON-2011005572

PATIENT
  Age: 64 Year
  Sex: Female

DRUGS (13)
  1. PREDNISONE [Concomitant]
  2. CITALOPRAM HYDROBROMIDE [Concomitant]
  3. IRBESARTAN AND HYDROCHLOROTHIAZIDE [Concomitant]
  4. TRISENOX [Suspect]
     Indication: ACUTE MYELOID LEUKAEMIA
     Route: 041
     Dates: start: 20090911, end: 20091006
  5. VFEND [Concomitant]
  6. RETACRIT [Concomitant]
  7. VESANOID [Suspect]
     Dates: start: 20100101
  8. CODOLIPRANE [Concomitant]
  9. UVEDOSE [Concomitant]
  10. KAYEXALATE [Concomitant]
  11. LANTUS [Concomitant]
  12. VESANOID [Suspect]
     Indication: ACUTE MYELOID LEUKAEMIA
     Route: 048
     Dates: start: 20090730, end: 20090826
  13. GLUCOPHAGE [Concomitant]

REACTIONS (8)
  - THROMBOCYTOPENIA [None]
  - MUSCULOSKELETAL PAIN [None]
  - PANCYTOPENIA [None]
  - MYALGIA [None]
  - PAIN [None]
  - POLYNEUROPATHY [None]
  - ACUTE MYELOID LEUKAEMIA [None]
  - MYOPATHY [None]
